FAERS Safety Report 6837299-8 (Version None)
Quarter: 2010Q3

REPORT INFORMATION
  Report Type: 
  Country: None (occurrence: None)
  Receive Date: 20100707
  Receipt Date: 20100628
  Transmission Date: 20110219
  Serious: Yes (Hospitalization)
  Sender: FDA-Public Use
  Company Number: B0663635A

PATIENT
  Age: 27 Year
  Sex: Female

DRUGS (3)
  1. ACYCLOVIR [Suspect]
     Indication: ENCEPHALITIS
     Dosage: 750 MG / INTRAVENOUS
     Route: 042
  2. CEFTRIAXONE [Concomitant]
  3. AMPICILLIN TRIHYDRATE [Concomitant]

REACTIONS (7)
  - CSF PROTEIN INCREASED [None]
  - DRUG RESISTANCE [None]
  - ENCEPHALITIS HERPES [None]
  - HEMIPARESIS [None]
  - IIIRD NERVE PARALYSIS [None]
  - PLEOCYTOSIS [None]
  - SOMNOLENCE [None]
